FAERS Safety Report 20553839 (Version 1)
Quarter: 2022Q1

REPORT INFORMATION
  Report Type: Report from Study
  Country: US (occurrence: US)
  Receive Date: 20220304
  Receipt Date: 20220304
  Transmission Date: 20220423
  Serious: Yes (Other)
  Sender: FDA-Public Use
  Company Number: US-TEVA-790472USA

PATIENT
  Age: 45 Year
  Sex: Female

DRUGS (1)
  1. CINQAIR [Suspect]
     Active Substance: RESLIZUMAB
     Route: 065
     Dates: start: 20170628

REACTIONS (7)
  - Swollen tongue [Recovered/Resolved]
  - Adverse reaction [Recovered/Resolved]
  - Pruritus [Recovered/Resolved]
  - Erythema [Recovered/Resolved]
  - Erythema [Recovered/Resolved]
  - Erythema [Recovered/Resolved]
  - Wheezing [Recovered/Resolved]

NARRATIVE: CASE EVENT DATE: 20170628
